FAERS Safety Report 5484168-4 (Version None)
Quarter: 2007Q4

REPORT INFORMATION
  Report Type: 
  Country: None (occurrence: None)
  Receive Date: 20071012
  Receipt Date: 20070821
  Transmission Date: 20080405
  Serious: No
  Sender: FDA-Public Use
  Company Number: US-ASTRAZENECA-2007UW20048

PATIENT
  Age: 81 Year
  Sex: Female
  Weight: 67.1 kg

DRUGS (3)
  1. SYMBICORT [Suspect]
     Indication: DYSPNOEA
     Dosage: 80/4.5 UG BID
     Route: 055
     Dates: start: 20070801
  2. SINGULAIR [Concomitant]
  3. HYDROCHLOROTHIAZIDE [Concomitant]

REACTIONS (3)
  - DIARRHOEA [None]
  - HOT FLUSH [None]
  - NERVOUSNESS [None]
